FAERS Safety Report 4732777-X (Version None)
Quarter: 2005Q3

REPORT INFORMATION
  Report Type: 
  Country: None (occurrence: None)
  Receive Date: 20050803
  Receipt Date: 20050727
  Transmission Date: 20060218
  Serious: Yes (Other)
  Sender: FDA-Public Use
  Company Number: PL-GLAXOSMITHKLINE-B0389387A

PATIENT
  Sex: Female
  Weight: 53 kg

DRUGS (2)
  1. FLIXOTIDE [Suspect]
     Dosage: 1AMP UNKNOWN
     Route: 055
     Dates: start: 20050403, end: 20050404
  2. SEREVENT [Concomitant]
     Route: 055
     Dates: start: 20030101

REACTIONS (4)
  - DRUG INTOLERANCE [None]
  - HEADACHE [None]
  - SYNCOPE [None]
  - TETANY [None]
